FAERS Safety Report 5048791-3 (Version None)
Quarter: 2006Q3

REPORT INFORMATION
  Report Type: 
  Country: None (occurrence: None)
  Receive Date: 20060706
  Receipt Date: 20060621
  Transmission Date: 20061208
  Serious: Yes (Other)
  Sender: FDA-Public Use
  Company Number: RENA-11701

PATIENT
  Age: 57 Year
  Sex: Male

DRUGS (9)
  1. PHOSBLOCK 250 MG TABLETS [Suspect]
     Indication: HYPERPHOSPHATAEMIA
     Dosage: 1500 MG, DAILY PO
     Route: 048
     Dates: start: 20051213, end: 20060228
  2. SUCRALFATE [Concomitant]
  3. AZELNIDIPINE [Concomitant]
  4. DOXAZOSIN MESYLATE [Concomitant]
  5. FAMOTIDINE [Concomitant]
  6. ALFACALCIDOL [Concomitant]
  7. EPOETIN ALFA [Concomitant]
  8. CHONDROITIN SULFATE - IRON COLLOID [Concomitant]
  9. GLYCYRRHIZINATE [Concomitant]

REACTIONS (1)
  - RASH GENERALISED [None]
